FAERS Safety Report 6811771-9 (Version None)
Quarter: 2010Q2

REPORT INFORMATION
  Report Type: 
  Country: None (occurrence: None)
  Receive Date: 20100628
  Receipt Date: 20100615
  Transmission Date: 20101027
  Serious: Yes (Hospitalization)
  Sender: FDA-Public Use
  Company Number: VAL_00432_2010

PATIENT
  Sex: Female

DRUGS (5)
  1. ROCALTROL [Suspect]
     Indication: MULTIPLE MYELOMA
     Dosage: (DF)
  2. ARANRSP (ARANESP-DARBEPOETIN ALFA)  (NOT SPECIFIED) [Suspect]
     Indication: MULTIPLE MYELOMA
     Dosage: (DF)
  3. THALIDOMIDE [Suspect]
     Indication: MULTIPLE MYELOMA
     Dosage: (100 MG ORAL)
     Route: 048
     Dates: start: 20091010, end: 20100503
  4. INDERAL [Concomitant]
  5. LIPITOR [Concomitant]

REACTIONS (1)
  - PANCREATITIS [None]
